FAERS Safety Report 5026477-9 (Version None)
Quarter: 2006Q2

REPORT INFORMATION
  Report Type: 
  Country: None (occurrence: None)
  Receive Date: 20060426
  Receipt Date: 20060123
  Transmission Date: 20061013
  Serious: Yes (Other)
  Sender: FDA-Public Use
  Company Number: 2006012776

PATIENT
  Age: 27 Year
  Sex: Male
  Weight: 108.8633 kg

DRUGS (4)
  1. LYRICA [Suspect]
     Indication: NEUROPATHY PERIPHERAL
     Dosage: 275 MG (3 IN 1 D), ORAL
     Route: 048
     Dates: start: 20051101, end: 20060118
  2. METOPROLOL SUCCINATE [Concomitant]
  3. PERCOCET [Concomitant]
  4. DURAGESIC-100 [Concomitant]

REACTIONS (2)
  - HEADACHE [None]
  - NAUSEA [None]
